FAERS Safety Report 18770853 (Version 1)
Quarter: 2021Q1

REPORT INFORMATION
  Report Type: Other
  Country: US (occurrence: US)
  Receive Date: 20210122
  Receipt Date: 20210122
  Transmission Date: 20210419
  Serious: Yes (Other)
  Sender: FDA-Public Use
  Company Number: US-ROCHE-2750841

PATIENT

DRUGS (1)
  1. TOCILIZUMAB. [Suspect]
     Active Substance: TOCILIZUMAB
     Indication: GIANT CELL ARTERITIS
     Route: 065

REACTIONS (12)
  - Intestinal perforation [Unknown]
  - Pneumonia [Unknown]
  - Leukopenia [Unknown]
  - Hypersensitivity [Unknown]
  - Dyslipidaemia [Unknown]
  - Herpes zoster [Unknown]
  - Sepsis [Unknown]
  - Thrombocytopenia [Unknown]
  - Sinusitis [Unknown]
  - Transaminases increased [Unknown]
  - Cataract [Unknown]
  - Urinary tract infection [Unknown]
